FAERS Safety Report 26158057 (Version 1)
Quarter: 2025Q4

REPORT INFORMATION
  Report Type: Spontaneous
  Country: US (occurrence: None)
  Receive Date: 20251215
  Receipt Date: 20251215
  Transmission Date: 20260117
  Serious: No
  Sender: FDA-CTU
  Company Number: None

PATIENT
  Age: 76 Year
  Sex: Male
  Weight: 80 kg

DRUGS (1)
  1. SUCCINYLCHOLINE CHLORIDE [Suspect]
     Active Substance: SUCCINYLCHOLINE CHLORIDE
     Dates: start: 20250925, end: 20250925

REACTIONS (2)
  - Neuromuscular block prolonged [None]
  - Pseudocholinesterase deficiency [None]

NARRATIVE: CASE EVENT DATE: 20250925
